FAERS Safety Report 25405292 (Version 2)
Quarter: 2025Q3

REPORT INFORMATION
  Report Type: Spontaneous
  Country: TW (occurrence: TW)
  Receive Date: 20250606
  Receipt Date: 20250902
  Transmission Date: 20251021
  Serious: Yes (Life-Threatening, Hospitalization, Other)
  Sender: BRISTOL-MYERS SQUIBB COMPANY
  Company Number: TW-BRISTOL-MYERS SQUIBB COMPANY-2025-078866

PATIENT
  Age: 72 Year
  Sex: Male

DRUGS (5)
  1. NIVOLUMAB [Suspect]
     Active Substance: NIVOLUMAB
     Indication: Metastatic squamous cell carcinoma
     Dosage: THREE CYCLES
  2. NIVOLUMAB [Suspect]
     Active Substance: NIVOLUMAB
     Dosage: FIVE CYCLES
  3. DOCETAXEL [Concomitant]
     Active Substance: DOCETAXEL
     Indication: Metastatic squamous cell carcinoma
     Dosage: THREE CYCLES
  4. DOCETAXEL [Concomitant]
     Active Substance: DOCETAXEL
     Dosage: FIVE CYCLES
  5. CISPLATIN [Concomitant]
     Active Substance: CISPLATIN
     Indication: Metastatic squamous cell carcinoma
     Dosage: THREE CYCLES

REACTIONS (1)
  - Guillain-Barre syndrome [Recovering/Resolving]
